FAERS Safety Report 5511688-6 (Version None)
Quarter: 2007Q4

REPORT INFORMATION
  Report Type: 
  Country: None (occurrence: None)
  Receive Date: 20071109
  Receipt Date: 20071107
  Transmission Date: 20080405
  Serious: Yes (Hospitalization)
  Sender: FDA-Public Use
  Company Number: FR-ASTRAZENECA-2007CG01060

PATIENT
  Age: 13154 Day
  Sex: Male

DRUGS (9)
  1. MOPRAL [Suspect]
     Route: 048
     Dates: start: 20070601, end: 20070608
  2. KIDROLASE [Suspect]
     Route: 030
     Dates: start: 20070521, end: 20070601
  3. ZAVEDOS [Suspect]
     Route: 042
     Dates: start: 20070511, end: 20070601
  4. VINCRISTINE [Concomitant]
     Route: 042
     Dates: start: 20070511, end: 20070601
  5. VINCRISTINE [Concomitant]
     Route: 042
     Dates: start: 20070601
  6. NONAN [Concomitant]
     Route: 042
     Dates: start: 20070601
  7. CERNEVIT-12 [Concomitant]
     Route: 042
     Dates: start: 20070601
  8. SOLU-MEDROL [Concomitant]
     Dates: start: 20070601, end: 20070601
  9. SOLU-MEDROL [Concomitant]
     Dates: start: 20070608

REACTIONS (1)
  - RHABDOMYOLYSIS [None]
